FAERS Safety Report 10160542 (Version 2)
Quarter: 2014Q2

REPORT INFORMATION
  Report Type: Report from Study
  Country: DE (occurrence: DE)
  Receive Date: 20140508
  Receipt Date: 20140516
  Transmission Date: 20141212
  Serious: Yes (Hospitalization)
  Sender: FDA-Public Use
  Company Number: PHHO2014DE006511

PATIENT
  Sex: 0

DRUGS (9)
  1. FTY [Suspect]
     Indication: RELAPSING-REMITTING MULTIPLE SCLEROSIS
     Dosage: 0.5 MG, UNK
     Route: 048
     Dates: start: 20140128, end: 20140301
  2. FTY [Suspect]
     Dosage: 0.5 MG, UNK
     Route: 048
     Dates: start: 20140318
  3. CORTISON [Suspect]
  4. SOLU DECORTIN [Suspect]
     Indication: MULTIPLE SCLEROSIS RELAPSE
     Dosage: 1 MG, UNK
     Dates: start: 20140224
  5. CITALOPRAM [Concomitant]
     Indication: PAIN
     Dosage: 20 MG, UNK
     Dates: start: 201007
  6. DOLO VISANO                        /00210001/ [Concomitant]
     Indication: PAIN
     Dosage: 750 MG, UNK
     Dates: start: 201402
  7. SIRDALUD [Concomitant]
     Indication: PAIN
     Dosage: 2 MG, UNK
     Dates: start: 201402
  8. VIGANTOLETTEN [Concomitant]
     Indication: PROPHYLAXIS
     Dosage: 1000 MG, UNK
     Dates: start: 201307
  9. SPASMOLYT [Concomitant]
     Indication: BLADDER DYSFUNCTION
     Dosage: 5 MG, UNK
     Dates: start: 201303

REACTIONS (1)
  - Hypertensive crisis [Recovered/Resolved]
